FAERS Safety Report 9774393 (Version 1)
Quarter: 2013Q4

REPORT INFORMATION
  Report Type: Spontaneous
  Country: US (occurrence: None)
  Receive Date: 20131219
  Receipt Date: 20131219
  Transmission Date: 20140711
  Serious: Yes (Life-Threatening, Other)
  Sender: FDA-Public Use
  Company Number: None

PATIENT
  Age: 37 Year
  Sex: Female
  Weight: 104.33 kg

DRUGS (1)
  1. ABILIFY [Suspect]
     Indication: DEPRESSION
     Route: 048

REACTIONS (11)
  - Blood glucose increased [None]
  - Food craving [None]
  - Weight increased [None]
  - Compulsive shopping [None]
  - Thinking abnormal [None]
  - Legal problem [None]
  - Promiscuity [None]
  - Suicidal ideation [None]
  - Mania [None]
  - Job dissatisfaction [None]
  - Quality of life decreased [None]
